FAERS Safety Report 20697683 (Version 1)
Quarter: 2022Q2

REPORT INFORMATION
  Report Type: Spontaneous
  Country: US (occurrence: US)
  Receive Date: 20220411
  Receipt Date: 20220411
  Transmission Date: 20220720
  Serious: No
  Sender: FDA-Public Use
  Company Number: US-BIOGEN-2022BI01112085

PATIENT
  Age: 43 Year
  Sex: Female

DRUGS (1)
  1. SPINRAZA [Suspect]
     Active Substance: NUSINERSEN
     Indication: Spinal muscular atrophy
     Route: 037

REACTIONS (3)
  - Procedural failure [Unknown]
  - Procedural pain [Unknown]
  - Post procedural complication [Unknown]

NARRATIVE: CASE EVENT DATE: 20220401
